FAERS Safety Report 4543046-5 (Version None)
Quarter: 2004Q4

REPORT INFORMATION
  Report Type: 
  Country: None (occurrence: None)
  Receive Date: 20041229
  Receipt Date: 20041221
  Transmission Date: 20050328
  Serious: Yes (Hospitalization)
  Sender: FDA-Public Use
  Company Number: 2004AP05667

PATIENT
  Age: 83 Year
  Sex: Male

DRUGS (2)
  1. ZOLADEX [Suspect]
     Indication: PROSTATE CANCER
     Dosage: 3.6 MG Q4WK SQ
     Route: 058
     Dates: start: 20040212
  2. CHLORMADINONE ACETATE TAB [Suspect]
     Indication: PROSTATE CANCER
     Dosage: 100 MG DAILY PO
     Route: 048
     Dates: start: 20040701, end: 20040825

REACTIONS (4)
  - ANOREXIA [None]
  - HEPATIC FUNCTION ABNORMAL [None]
  - PLEURAL EFFUSION [None]
  - WEIGHT DECREASED [None]
